FAERS Safety Report 10431722 (Version 2)
Quarter: 2014Q3

REPORT INFORMATION
  Report Type: Spontaneous
  Country: US (occurrence: US)
  Receive Date: 20140904
  Receipt Date: 20140904
  Transmission Date: 20150326
  Serious: No
  Sender: FDA-Public Use
  Company Number: US-ELI_LILLY_AND_COMPANY-US201405007935

PATIENT
  Sex: Female
  Weight: 58.05 kg

DRUGS (8)
  1. LUCENTIS [Concomitant]
     Active Substance: RANIBIZUMAB
  2. FORTEO [Suspect]
     Active Substance: TERIPARATIDE
     Indication: OSTEOPOROSIS
     Dosage: 20 UG, UNKNOWN
     Route: 065
     Dates: end: 201406
  3. CALCIUM +D3 [Concomitant]
     Active Substance: CALCIUM\CHOLECALCIFEROL
     Dosage: UNK, BID
     Route: 048
  4. PROAIR                             /00972202/ [Concomitant]
     Active Substance: FLUTICASONE PROPIONATE
     Dosage: UNK, PRN
  5. LUTEIN                             /01638501/ [Concomitant]
     Active Substance: LUTEIN
     Dosage: 6 MG, WEEKLY (1/W)
  6. PRESERVISION EYE VITAMIN AND MINERAL SUPPL. [Concomitant]
  7. DILANTIN [Concomitant]
     Active Substance: PHENYTOIN
     Dosage: 100 MG, QD
  8. ALVESCO [Concomitant]
     Active Substance: CICLESONIDE
     Dosage: 160 UG, BID
     Route: 048

REACTIONS (1)
  - Eye pain [Recovered/Resolved]

NARRATIVE: CASE EVENT DATE: 201405
